FAERS Safety Report 11836414 (Version 1)
Quarter: 2015Q4

REPORT INFORMATION
  Report Type: Spontaneous
  Country: US (occurrence: US)
  Receive Date: 20151215
  Receipt Date: 20151215
  Transmission Date: 20160305
  Serious: Yes (Other)
  Sender: FDA-Public Use
  Company Number: US-HQ SPECIALTY-US-2015INT000692

PATIENT

DRUGS (3)
  1. CISPLATIN. [Suspect]
     Active Substance: CISPLATIN
     Indication: ENDOMETRIAL CANCER
     Dosage: UNK, CYCLE 1
     Route: 042
  2. DOXORUBICIN [Suspect]
     Active Substance: DOXORUBICIN
     Indication: ENDOMETRIAL CANCER
     Dosage: UNK, CYCLES 1
     Route: 042
  3. PACLITAXEL. [Suspect]
     Active Substance: PACLITAXEL
     Indication: ENDOMETRIAL CANCER
     Dosage: UNK, CYCLE 1
     Route: 042

REACTIONS (2)
  - Urosepsis [Unknown]
  - Infection [Unknown]
